FAERS Safety Report 21581950 (Version 1)
Quarter: 2022Q4

REPORT INFORMATION
  Report Type: Spontaneous
  Country: US (occurrence: None)
  Receive Date: 20221108
  Receipt Date: 20221108
  Transmission Date: 20230113
  Serious: No
  Sender: FDA-Public Use
  Company Number: None

PATIENT

DRUGS (2)
  1. HUMALOG KWIKPEN [Suspect]
     Active Substance: INSULIN LISPRO
     Dosage: OTHER STRENGTH : 500 UNITS/ML (U-50;?
  2. INSULIN GLARGINE [Suspect]
     Active Substance: INSULIN GLARGINE
     Dosage: OTHER STRENGTH : 100 UNITS/ML (U-10;?

REACTIONS (2)
  - Product packaging confusion [None]
  - Circumstance or information capable of leading to medication error [None]
